FAERS Safety Report 11414022 (Version 1)
Quarter: 2015Q3

REPORT INFORMATION
  Report Type: Spontaneous
  Country: US (occurrence: US)
  Receive Date: 20150824
  Receipt Date: 20150824
  Transmission Date: 20151125
  Serious: No
  Sender: FDA-Public Use
  Company Number: GXBR2015US001770

PATIENT
  Age: 72 Year
  Sex: Female

DRUGS (1)
  1. LIDOCAINE. [Suspect]
     Active Substance: LIDOCAINE
     Indication: HYPERKERATOSIS
     Dosage: 1 DF, ONCE/SINGLE
     Route: 061
     Dates: start: 20150708, end: 20150708

REACTIONS (2)
  - Application site pain [Not Recovered/Not Resolved]
  - Drug ineffective [Unknown]
